FAERS Safety Report 18136454 (Version 1)
Quarter: 2020Q3

REPORT INFORMATION
  Report Type: Spontaneous
  Country: ES (occurrence: ES)
  Receive Date: 20200811
  Receipt Date: 20200811
  Transmission Date: 20201103
  Serious: Yes (Other)
  Sender: FDA-Public Use
  Company Number: ES-ABBVIE-20K-144-3519029-00

PATIENT
  Age: 56 Year
  Sex: Male

DRUGS (9)
  1. HUMIRA [Suspect]
     Active Substance: ADALIMUMAB
     Indication: CROHN^S DISEASE
     Dosage: SOLUCION INYECTABLE EN PLUMA PRECARGADA, 2 PLUMAS PRECARGADAS DE 0,4 ML
     Route: 058
     Dates: start: 20150928, end: 20200703
  2. ZALDIAR [Concomitant]
     Active Substance: ACETAMINOPHEN\TRAMADOL HYDROCHLORIDE
     Indication: PRODUCT USED FOR UNKNOWN INDICATION
     Dosage: 37,5 MG/325 MG COMPRIMIDOS RECUBIERTOS CON PELICULA , 20 COMPRIMIDOS
     Route: 048
     Dates: start: 20150122
  3. MIRTAZAPINA FLAS RATIOPHARM [Concomitant]
     Indication: PRODUCT USED FOR UNKNOWN INDICATION
     Dosage: 15 MG COMPRIMIDOS BUCODISPERSABLES EFG, 30 COMPRIMIDOS
     Route: 048
     Dates: start: 20190507
  4. PLUSVENT ACCUHALER [Concomitant]
     Active Substance: FLUTICASONE PROPIONATE\SALMETEROL XINAFOATE
     Indication: PRODUCT USED FOR UNKNOWN INDICATION
     Dosage: 50 MICROGRAMOS/250 MICROGRAMOS /INHALACION POLVO PARA INHALACION , 1 INHALADOR DE 60 DOSIS
     Route: 055
     Dates: start: 20120323
  5. AMLODIPINO RATIOPHARM [Concomitant]
     Active Substance: AMLODIPINE BESYLATE
     Indication: PRODUCT USED FOR UNKNOWN INDICATION
     Dosage: 5 MG COMPRIMIDOS EFG , 30 COMPRIMIDOS
     Route: 048
     Dates: start: 20200528
  6. LORAZEPAM NORMON [Concomitant]
     Indication: PRODUCT USED FOR UNKNOWN INDICATION
     Dosage: 1 MG COMPRIMIDOS EFG, 50 COMPRIMIDOS
     Route: 048
     Dates: start: 20150602
  7. FLUOXETINA CINFA [Concomitant]
     Active Substance: FLUOXETINE HYDROCHLORIDE
     Indication: PRODUCT USED FOR UNKNOWN INDICATION
     Dosage: 20 MG COMPRIMIDOS DISPERSABLES EFG, 60 COMPRIMIDOS
     Route: 048
     Dates: start: 20181121
  8. OPTOVITE B12 [Suspect]
     Active Substance: CYANOCOBALAMIN
     Indication: CROHN^S DISEASE
     Dosage: 1.000 MICROGRAMOS SOLUCION INYECTABLE , 5 AMPOLLAS DE 2 ML
     Route: 030
     Dates: start: 20120424, end: 20200703
  9. EBASTEL FORTE [Concomitant]
     Indication: PRODUCT USED FOR UNKNOWN INDICATION
     Dosage: 20 MG COMPRIMIDOS RECUBIERTOS CON PELICULA, 20 COMPRIMIDOS
     Route: 048
     Dates: start: 20200213

REACTIONS (1)
  - Toxic skin eruption [Recovered/Resolved]

NARRATIVE: CASE EVENT DATE: 20200102
